FAERS Safety Report 10958682 (Version 1)
Quarter: 2015Q1

REPORT INFORMATION
  Report Type: Spontaneous
  Country: US (occurrence: US)
  Receive Date: 20150326
  Receipt Date: 20150326
  Transmission Date: 20150721
  Serious: No
  Sender: FDA-Public Use
  Company Number: US-ALLERGAN-1503126US

PATIENT
  Age: 59 Year
  Sex: Male

DRUGS (1)
  1. ACZONE [Suspect]
     Active Substance: DAPSONE
     Indication: DERMATITIS
     Dosage: UNK
     Route: 061
     Dates: start: 20150217

REACTIONS (4)
  - Skin swelling [Unknown]
  - Off label use [Unknown]
  - Scrotal swelling [Unknown]
  - Penile swelling [Unknown]
